FAERS Safety Report 6728605-3 (Version None)
Quarter: 2010Q2

REPORT INFORMATION
  Report Type: 
  Country: None (occurrence: None)
  Receive Date: 20100517
  Receipt Date: 20100517
  Transmission Date: 20101027
  Serious: Yes (Hospitalization)
  Sender: FDA-Public Use
  Company Number: US-CEPHALON-2010002758

PATIENT
  Sex: Male

DRUGS (2)
  1. TREANDA [Suspect]
     Indication: MANTLE CELL LYMPHOMA
     Dates: start: 20100301, end: 20100301
  2. RITUXAN [Concomitant]
     Indication: MANTLE CELL LYMPHOMA
     Dates: start: 20100301, end: 20100301

REACTIONS (1)
  - HAEMOLYTIC ANAEMIA [None]
